FAERS Safety Report 5060904-6 (Version None)
Quarter: 2006Q3

REPORT INFORMATION
  Report Type: 
  Country: None (occurrence: None)
  Receive Date: 20060719
  Receipt Date: 20060719
  Transmission Date: 20061208
  Serious: Yes (Hospitalization)
  Sender: FDA-Public Use
  Company Number: None

PATIENT
  Age: 77 Year
  Sex: Male

DRUGS (7)
  1. TARCEVA [Suspect]
     Indication: PROSTATE CANCER
     Dosage: 150 MG QD PO
     Route: 048
     Dates: start: 20060426, end: 20060614
  2. CALCIUM GLUCONATE [Concomitant]
  3. ENALAPRIL MALEATE [Concomitant]
  4. MOBIC [Concomitant]
  5. M.V.I. [Concomitant]
  6. VASOTEC [Concomitant]
  7. ASCORBIC ACID [Concomitant]

REACTIONS (7)
  - BACTERIAL INFECTION [None]
  - BLOOD ALBUMIN DECREASED [None]
  - HYDRONEPHROSIS [None]
  - JOINT SWELLING [None]
  - OEDEMA PERIPHERAL [None]
  - TACHYCARDIA [None]
  - URINARY TRACT INFECTION [None]
